FAERS Safety Report 5045900-7 (Version None)
Quarter: 2006Q3

REPORT INFORMATION
  Report Type: 
  Country: None (occurrence: None)
  Receive Date: 20060710
  Receipt Date: 20060703
  Transmission Date: 20061208
  Serious: Yes (Death, Life-Threatening, Hospitalization, Other)
  Sender: FDA-Public Use
  Company Number: AT-JNJFOC-20060700460

PATIENT
  Sex: Female
  Weight: 70 kg

DRUGS (11)
  1. DOXORUBICIN HCL [Suspect]
     Route: 042
  2. DOXORUBICIN HCL [Suspect]
     Route: 042
  3. DOXORUBICIN HCL [Suspect]
     Indication: BREAST CANCER
     Route: 042
  4. PAROXETINE HCL [Concomitant]
     Indication: DEPRESSION
     Route: 048
  5. OXETACAINE/ALUMINUM HYDROXID [Concomitant]
     Indication: GASTRITIS
     Route: 048
  6. BROTIZOLAM [Concomitant]
     Indication: INSOMNIA
     Route: 048
  7. PANTOPRAZOL [Concomitant]
     Indication: GASTRITIS
     Route: 048
  8. CAPTOPRIL HYDROCHLOROTHIAZIDE [Concomitant]
     Indication: HYPERTONIA
     Route: 048
  9. FUROSEMIDE/SPIRONOLACTONE [Concomitant]
     Indication: ASCITES
     Route: 048
  10. FUROSEMIDE/SPIRONOLACTONE [Concomitant]
     Indication: HYPERTONIA
     Route: 048
  11. ACETYLSALICYLIC ACID SRT [Concomitant]
     Indication: CORONARY ARTERY DISEASE
     Route: 048

REACTIONS (2)
  - CARDIAC FAILURE [None]
  - SEPSIS [None]
